FAERS Safety Report 20147023 (Version 1)
Quarter: 2021Q4

REPORT INFORMATION
  Report Type: Spontaneous
  Country: US (occurrence: US)
  Receive Date: 20211203
  Receipt Date: 20211203
  Transmission Date: 20220303
  Serious: No
  Sender: FDA-Public Use
  Company Number: US-SANOFI-00861770

PATIENT

DRUGS (1)
  1. RIFADIN [Suspect]
     Active Substance: RIFAMPIN

REACTIONS (1)
  - Intercepted product storage error [Unknown]
